FAERS Safety Report 19405590 (Version 7)
Quarter: 2021Q3

REPORT INFORMATION
  Report Type: Spontaneous
  Country: GB (occurrence: GB)
  Receive Date: 20210611
  Receipt Date: 20210811
  Transmission Date: 20211014
  Serious: Yes (Other)
  Sender: FDA-Public Use
  Company Number: GB-ACCORD-227555

PATIENT
  Age: 29 Year
  Sex: Female

DRUGS (15)
  1. LAMOTRIGINE. [Concomitant]
     Active Substance: LAMOTRIGINE
     Indication: PRODUCT USED FOR UNKNOWN INDICATION
     Dosage: 200 MILLIGRAM, BID
     Route: 065
     Dates: end: 2020
  2. CLOBAZAM. [Interacting]
     Active Substance: CLOBAZAM
     Indication: PRODUCT USED FOR UNKNOWN INDICATION
     Dosage: 15 MILLIGRAM, QD (5MG/10MG)
     Route: 065
     Dates: start: 202006, end: 202006
  3. CANNABIDIOL [Suspect]
     Active Substance: CANNABIDIOL
     Indication: PRODUCT USED FOR UNKNOWN INDICATION
     Dosage: 5.1 MG/KG/DAY, 220 MILLIGRAM, BID
     Route: 048
     Dates: start: 202008
  4. CLOBAZAM. [Interacting]
     Active Substance: CLOBAZAM
     Indication: PRODUCT USED FOR UNKNOWN INDICATION
     Dosage: UNK, (REDUCED DOSE)
     Route: 065
     Dates: start: 202005, end: 202006
  5. CLOBAZAM. [Interacting]
     Active Substance: CLOBAZAM
     Indication: PRODUCT USED FOR UNKNOWN INDICATION
     Dosage: 10 MILLIGRAM, QD (NOCTE)
     Route: 065
     Dates: start: 202006, end: 202007
  6. CLOBAZAM. [Suspect]
     Active Substance: CLOBAZAM
     Indication: PRODUCT USED FOR UNKNOWN INDICATION
     Route: 065
     Dates: start: 202008
  7. VALPROIC ACID. [Interacting]
     Active Substance: VALPROIC ACID
     Indication: LENNOX-GASTAUT SYNDROME
     Dosage: 1000 MILLIGRAM, BID
     Route: 048
     Dates: start: 1992
  8. CLOBAZAM. [Interacting]
     Active Substance: CLOBAZAM
     Indication: ILL-DEFINED DISORDER
     Dosage: 45 MILLIGRAM, QD (20MG/25MG)
     Route: 065
  9. CLOBAZAM. [Interacting]
     Active Substance: CLOBAZAM
     Indication: PRODUCT USED FOR UNKNOWN INDICATION
     Dosage: UNK, (REDUCED DOSE)
     Route: 065
     Dates: start: 202004, end: 202005
  10. LAMOTRIGINE. [Concomitant]
     Active Substance: LAMOTRIGINE
     Dosage: 350 MILLIGRAM, QD (150MG/200MG)
     Route: 065
     Dates: start: 202007
  11. CANNABIDIOL [Suspect]
     Active Substance: CANNABIDIOL
     Indication: PRODUCT USED FOR UNKNOWN INDICATION
     Dosage: 4.1 MG/KG/DAY, 180 MILLIGRAM, BID
     Route: 048
     Dates: start: 202006, end: 202008
  12. EPIDYOLEX [Interacting]
     Active Substance: CANNABIDIOL
     Indication: LENNOX-GASTAUT SYNDROME
     Dosage: 5.1 MG/KG/DAY, 220 MILLIGRAM, BID
     Route: 048
     Dates: start: 20200326, end: 202006
  13. VALPROIC ACID. [Interacting]
     Active Substance: VALPROIC ACID
     Indication: PRODUCT USED FOR UNKNOWN INDICATION
     Dosage: 800 MILLIGRAM, BID
     Route: 048
  14. CLOBAZAM. [Interacting]
     Active Substance: CLOBAZAM
     Indication: PRODUCT USED FOR UNKNOWN INDICATION
     Dosage: 5 MILLIGRAM, BID
     Route: 065
     Dates: start: 202006, end: 202006
  15. CLOBAZAM. [Interacting]
     Active Substance: CLOBAZAM
     Indication: PRODUCT USED FOR UNKNOWN INDICATION
     Dosage: 7.5 MILLIGRAM, QD (NOCTE)
     Route: 065
     Dates: start: 202007, end: 202008

REACTIONS (10)
  - Toxicity to various agents [Recovered/Resolved]
  - Drug abuse [Unknown]
  - Drug interaction [Unknown]
  - Partial seizures [Recovered/Resolved]
  - Vomiting [Recovered/Resolved]
  - Overdose [Unknown]
  - Alopecia [Recovered/Resolved]
  - Gait disturbance [Recovered/Resolved]
  - Hypersomnia [Recovered/Resolved]
  - Fatigue [Recovered/Resolved]

NARRATIVE: CASE EVENT DATE: 202004
